FAERS Safety Report 8594644-3 (Version None)
Quarter: 2012Q3

REPORT INFORMATION
  Report Type: 
  Country: None (occurrence: None)
  Receive Date: 20120815
  Receipt Date: 20120813
  Transmission Date: 20120928
  Serious: No
  Sender: FDA-Public Use
  Company Number: US-PFIZER INC-2012197543

PATIENT
  Age: 59 Year
  Sex: Female
  Weight: 58.957 kg

DRUGS (3)
  1. CHANTIX [Suspect]
     Dosage: UNK
     Route: 048
     Dates: start: 20120101
  2. CHANTIX [Suspect]
     Indication: SMOKING CESSATION THERAPY
     Dosage: 0.5 MG, 1X/DAY
     Route: 048
     Dates: start: 20120806, end: 20120101
  3. PLAQUENIL [Concomitant]
     Dosage: 200 MG, UNK

REACTIONS (1)
  - DRUG INEFFECTIVE [None]
